FAERS Safety Report 7472377-4 (Version None)
Quarter: 2011Q2

REPORT INFORMATION
  Report Type: 
  Country: None (occurrence: None)
  Receive Date: 20110511
  Receipt Date: 20110503
  Transmission Date: 20111010
  Serious: Yes (Death, Other)
  Sender: FDA-Public Use
  Company Number: PHFR2011GB02829

PATIENT
  Sex: Male

DRUGS (1)
  1. EXELON [Suspect]
     Dosage: 4.6 MG, UNK
     Route: 062

REACTIONS (3)
  - DEATH [None]
  - LUNG DISORDER [None]
  - CARDIAC FAILURE [None]
